FAERS Safety Report 26168763 (Version 1)
Quarter: 2025Q4

REPORT INFORMATION
  Report Type: Spontaneous
  Country: GB (occurrence: GB)
  Receive Date: 20251217
  Receipt Date: 20251217
  Transmission Date: 20260117
  Serious: Yes (Other)
  Sender: ORION PHARMA
  Company Number: GB-MLMSERVICE-20251206-PI740000-00218-2

PATIENT
  Age: 73 Year
  Sex: Female

DRUGS (1)
  1. METHOTREXATE [Suspect]
     Active Substance: METHOTREXATE
     Indication: Rheumatoid arthritis
     Dates: start: 200705

REACTIONS (3)
  - Atypical fracture [Unknown]
  - Tibia fracture [Unknown]
  - Bone disorder [Unknown]

NARRATIVE: CASE EVENT DATE: 20240501
